FAERS Safety Report 18541958 (Version 1)
Quarter: 2020Q4

REPORT INFORMATION
  Report Type: Spontaneous
  Country: US (occurrence: US)
  Receive Date: 20201125
  Receipt Date: 20201125
  Transmission Date: 20210114
  Serious: No
  Sender: FDA-Public Use
  Company Number: US-ACCORD-202865

PATIENT
  Age: 53 Year
  Sex: Male
  Weight: 88.64 kg

DRUGS (1)
  1. BUPROPION ACCORD [Suspect]
     Active Substance: BUPROPION HYDROCHLORIDE
     Indication: PRODUCT USED FOR UNKNOWN INDICATION
     Dosage: BUPROPION XL, STRENGTH-300MG

REACTIONS (7)
  - Insomnia [Unknown]
  - Product odour abnormal [Unknown]
  - Drug ineffective [Unknown]
  - Food craving [Unknown]
  - Depression [Unknown]
  - Headache [Unknown]
  - Fatigue [Unknown]
